FAERS Safety Report 10597456 (Version 2)
Quarter: 2014Q4

REPORT INFORMATION
  Report Type: Spontaneous
  Country: CN (occurrence: CN)
  Receive Date: 20141121
  Receipt Date: 20141128
  Transmission Date: 20150529
  Serious: Yes (Hospitalization)
  Sender: FDA-Public Use
  Company Number: CN-ASTRAZENECA-2014SE79797

PATIENT
  Age: 64 Year
  Sex: Male

DRUGS (4)
  1. SHENGYING [Suspect]
     Active Substance: HERBALS
     Route: 041
  2. DIURETIC DRUG [Concomitant]
  3. NEXIUM [Suspect]
     Active Substance: ESOMEPRAZOLE MAGNESIUM
     Indication: GASTRITIS EROSIVE
     Route: 048
     Dates: start: 20140908, end: 20141008
  4. VASOREL [Concomitant]
     Route: 048
     Dates: start: 20141008

REACTIONS (3)
  - Dry eye [Recovering/Resolving]
  - Dry mouth [Recovering/Resolving]
  - Dry skin [Recovering/Resolving]
